FAERS Safety Report 6924061-0 (Version None)
Quarter: 2010Q3

REPORT INFORMATION
  Report Type: 
  Country: None (occurrence: None)
  Receive Date: 20100813
  Receipt Date: 20100805
  Transmission Date: 20110219
  Serious: Yes (Hospitalization)
  Sender: FDA-Public Use
  Company Number: JP-AMGEN-KDC425845

PATIENT
  Age: 69 Year
  Sex: Male
  Weight: 78 kg

DRUGS (34)
  1. VECTIBIX [Suspect]
     Indication: COLORECTAL CANCER
     Route: 041
     Dates: start: 20100706, end: 20100706
  2. ELPLAT [Suspect]
     Indication: COLORECTAL CANCER
     Route: 041
     Dates: start: 20100706, end: 20100706
  3. LANSOPRAZOLE [Concomitant]
     Indication: PROPHYLAXIS AGAINST GASTROINTESTINAL ULCER
     Route: 048
  4. BASEN OD [Concomitant]
     Indication: DIABETES MELLITUS
     Route: 048
  5. ISOVORIN [Concomitant]
     Indication: COLORECTAL CANCER
     Route: 041
     Dates: start: 20100706, end: 20100706
  6. ANTIHISTAMINES [Concomitant]
     Indication: PROPHYLAXIS
     Route: 041
     Dates: start: 20100706, end: 20100706
  7. CORTICOSTEROIDS [Concomitant]
     Indication: PROPHYLAXIS
     Route: 041
     Dates: start: 20100706, end: 20100706
  8. ZOFRAN [Concomitant]
     Indication: PROPHYLAXIS OF NAUSEA AND VOMITING
     Route: 042
     Dates: start: 20100706, end: 20100706
  9. ZANTAC [Concomitant]
     Indication: GASTRITIS PROPHYLAXIS
     Route: 042
     Dates: start: 20100706, end: 20100706
  10. DECADRON [Concomitant]
     Indication: PROPHYLAXIS OF NAUSEA AND VOMITING
     Route: 042
     Dates: start: 20100706, end: 20100706
  11. DECADRON [Concomitant]
     Indication: CANCER PAIN
     Route: 048
  12. POLARAMINE [Concomitant]
     Indication: ALLERGY PROPHYLAXIS
     Route: 042
     Dates: start: 20100706, end: 20100706
  13. TATHION [Concomitant]
     Indication: HEPATIC FUNCTION ABNORMAL
     Route: 042
     Dates: start: 20100706, end: 20100706
  14. BONALON [Concomitant]
     Indication: OSTEOPOROSIS PROPHYLAXIS
     Route: 048
  15. LOXONIN [Concomitant]
     Indication: CANCER PAIN
     Route: 048
  16. MS HOT PACK [Concomitant]
     Indication: CANCER PAIN
     Route: 062
  17. KADIAN [Concomitant]
     Indication: CANCER PAIN
     Route: 048
  18. DUROTEP MT PATCH [Concomitant]
     Indication: CANCER PAIN
     Route: 062
  19. COTRIM [Concomitant]
     Indication: INFECTION PROPHYLAXIS
     Route: 048
  20. GABAPEN [Concomitant]
     Indication: CANCER PAIN
     Route: 048
  21. AMARYL [Concomitant]
     Indication: DIABETES MELLITUS
     Route: 048
  22. AMLODIN OD [Concomitant]
     Indication: HYPERTENSION
     Route: 048
  23. MAGMITT [Concomitant]
     Indication: CONSTIPATION
     Route: 048
  24. PURSENNID [Concomitant]
     Indication: CONSTIPATION
     Route: 048
  25. MYSER [Concomitant]
     Indication: RASH
     Route: 062
  26. AZUNOL OINTMENT [Concomitant]
     Indication: RASH
     Route: 062
  27. U-PASTA [Concomitant]
     Indication: SKIN EXFOLIATION
     Route: 062
  28. AZUNOL GARGLE LIQUID [Concomitant]
     Indication: STOMATITIS
     Route: 049
  29. XYLOCAINE [Concomitant]
     Indication: STOMATITIS
     Route: 049
  30. ALDACTONE [Concomitant]
     Indication: OEDEMA PERIPHERAL
     Route: 048
  31. LASIX [Concomitant]
     Indication: OEDEMA PERIPHERAL
     Route: 048
  32. UNSPECIFIED ANTIHISTAMINE [Concomitant]
     Route: 042
     Dates: start: 20100706
  33. UNSPECIFIED STEROIDS [Concomitant]
     Route: 042
     Dates: start: 20100706
  34. LEUCOVORIN CALCIUM [Concomitant]
     Route: 042
     Dates: start: 20100706, end: 20100706

REACTIONS (3)
  - HEPATIC FUNCTION ABNORMAL [None]
  - INFUSION RELATED REACTION [None]
  - INTERSTITIAL LUNG DISEASE [None]
